FAERS Safety Report 6038617-3 (Version None)
Quarter: 2009Q1

REPORT INFORMATION
  Report Type: 
  Country: None (occurrence: None)
  Receive Date: 20090115
  Receipt Date: 20090105
  Transmission Date: 20090719
  Serious: Yes (Hospitalization, Other)
  Sender: FDA-Public Use
  Company Number: US-BAXTER-2008BH004256

PATIENT
  Age: 31 Year
  Sex: Female
  Weight: 105 kg

DRUGS (12)
  1. HEPARIN SODIUM INJECTION [Suspect]
     Indication: CENTRAL VENOUS CATHETERISATION
     Dosage: DOSE UNIT:UNKNOWN
     Route: 042
     Dates: start: 20060901, end: 20080301
  2. HEPARIN SODIUM INJECTION [Suspect]
     Indication: ANGIOPLASTY
     Dosage: DOSE UNIT:UNKNOWN
     Route: 042
     Dates: start: 20060901, end: 20080301
  3. HEPARIN SODIUM 1,000 UNITS AND SODIUM CHLORIDE 0.9% [Suspect]
     Indication: DRUG USE FOR UNKNOWN INDICATION
     Route: 042
     Dates: start: 20071210, end: 20080301
  4. HEPARIN SODIUM 5,000 UNITS IN DEXTROSE 5% [Suspect]
     Indication: DRUG USE FOR UNKNOWN INDICATION
     Route: 042
     Dates: start: 20080125, end: 20080128
  5. LOVENOX [Concomitant]
     Indication: THROMBOSIS PROPHYLAXIS
     Dosage: DOSE UNIT:UNKNOWN
     Route: 065
  6. METOPROLOL TARTRATE [Concomitant]
     Indication: DRUG USE FOR UNKNOWN INDICATION
     Route: 048
  7. VITAMIN B-12 [Concomitant]
     Indication: DRUG USE FOR UNKNOWN INDICATION
     Route: 065
  8. MULTI-VITAMINS [Concomitant]
     Indication: DRUG USE FOR UNKNOWN INDICATION
     Route: 065
  9. LORTAB [Concomitant]
     Indication: DRUG USE FOR UNKNOWN INDICATION
     Route: 065
  10. PHENERGAN HCL [Concomitant]
     Indication: DRUG USE FOR UNKNOWN INDICATION
     Route: 065
  11. COUMADIN [Concomitant]
     Indication: DRUG USE FOR UNKNOWN INDICATION
     Route: 065
  12. DIHYDROERGOTAMINE [Concomitant]
     Indication: MIGRAINE
     Route: 065

REACTIONS (13)
  - CATHETER SITE INFECTION [None]
  - DEEP VEIN THROMBOSIS [None]
  - DYSGEUSIA [None]
  - FLUSHING [None]
  - HAEMATEMESIS [None]
  - HAEMOGLOBIN DECREASED [None]
  - INJECTION SITE IRRITATION [None]
  - RASH [None]
  - RECTAL HAEMORRHAGE [None]
  - SEPSIS [None]
  - SUPERIOR VENA CAVAL STENOSIS [None]
  - THROMBOSIS [None]
  - VENA CAVA THROMBOSIS [None]
